FAERS Safety Report 6881143-X (Version None)
Quarter: 2010Q3

REPORT INFORMATION
  Report Type: 
  Country: None (occurrence: None)
  Receive Date: 20100727
  Receipt Date: 20100715
  Transmission Date: 20110219
  Serious: No
  Sender: FDA-Public Use
  Company Number: US-BIOGENIDEC-2010BI008662

PATIENT
  Age: 37 Year
  Sex: Female

DRUGS (4)
  1. TYSABRI [Suspect]
     Indication: MULTIPLE SCLEROSIS
     Route: 042
     Dates: start: 20080711
  2. PROZAC [Concomitant]
     Indication: ANXIETY
  3. BUSPAR [Concomitant]
     Indication: ANXIETY
  4. CLONAZEPAM [Concomitant]
     Indication: ANXIETY

REACTIONS (4)
  - COUGH [None]
  - INFUSION SITE PAIN [None]
  - POOR VENOUS ACCESS [None]
  - VEIN DISORDER [None]
